FAERS Safety Report 23889654 (Version 1)
Quarter: 2024Q2

REPORT INFORMATION
  Report Type: Spontaneous
  Country: ES (occurrence: ES)
  Receive Date: 20240523
  Receipt Date: 20240523
  Transmission Date: 20240716
  Serious: Yes (Other)
  Sender: FDA-Public Use
  Company Number: ES-ROCHE-3004294

PATIENT
  Sex: Male
  Weight: 93.1 kg

DRUGS (44)
  1. CARBOPLATIN [Suspect]
     Active Substance: CARBOPLATIN
     Indication: Lung cancer metastatic
     Dosage: ON 14/MAY/2021, RECEIVED MOST RECENT DOSE OF STUDY DRUG PRIOR TO AE
     Route: 042
     Dates: start: 20210423
  2. ATEZOLIZUMAB [Suspect]
     Active Substance: ATEZOLIZUMAB
     Indication: Lung cancer metastatic
     Dosage: UNK, EVERY 3 WEEKS
  3. ATEZOLIZUMAB [Suspect]
     Active Substance: ATEZOLIZUMAB
     Dosage: ON 14/MAY/2021, RECEIVED MOST RECENT DOSE OF ATEZOLIZUMAB PRIOR TO AE.
     Route: 042
     Dates: start: 20210423
  4. TIRAGOLUMAB [Suspect]
     Active Substance: TIRAGOLUMAB
     Indication: Lung cancer metastatic
     Dosage: UNK
     Route: 042
     Dates: start: 20210423
  5. TIRAGOLUMAB [Suspect]
     Active Substance: TIRAGOLUMAB
     Dosage: RECEIVED MOST RECENT DOSE OF TIRAGOLUMAB PRIOR TO AE
     Dates: start: 20210514
  6. TIRAGOLUMAB [Suspect]
     Active Substance: TIRAGOLUMAB
     Dosage: RECEIVED MOST RECENT DOSE OF TIRAGOLUMAB PRIOR TO AE
     Dates: start: 20220628
  7. PEMBROLIZUMAB [Suspect]
     Active Substance: PEMBROLIZUMAB
     Indication: Lung cancer metastatic
     Dosage: UNK
     Route: 042
     Dates: start: 20210423
  8. PEMBROLIZUMAB [Suspect]
     Active Substance: PEMBROLIZUMAB
     Dosage: UNK
  9. PEMBROLIZUMAB [Suspect]
     Active Substance: PEMBROLIZUMAB
     Dosage: RECEIVED MOST RECENT DOSE OF PEMBROLIZUMAB PRIOR TO AE
     Dates: start: 20210514
  10. PEMETREXED [Suspect]
     Active Substance: PEMETREXED
     Indication: Lung cancer metastatic
     Dosage: 1015 MG, EVERY 3 WEEKS
     Route: 042
     Dates: start: 20210423
  11. PEMETREXED [Suspect]
     Active Substance: PEMETREXED
     Dosage: RECEIVED MOST RECENT DOSE (1010 MG) OF STUDY DRUG PRIOR TO AE
     Route: 042
     Dates: start: 20210514
  12. PEMETREXED [Suspect]
     Active Substance: PEMETREXED
     Dosage: DOSE LAST STUDY DRUG ADMIN PRIOR AE
     Route: 042
  13. EBASTINE [Concomitant]
     Active Substance: EBASTINE
     Indication: Conjunctivitis
     Dosage: 10 MG, 1X/DAY
     Dates: start: 20220315, end: 20220320
  14. EBASTINE [Concomitant]
     Active Substance: EBASTINE
     Indication: Rhinorrhoea
     Dosage: 10 MG, 1X/DAY
     Dates: start: 20230124
  15. FOLATE SODIUM [Concomitant]
     Active Substance: FOLATE SODIUM
     Dosage: 400 UG, 1X/DAY
     Dates: start: 20210422
  16. COBALAMIN [Concomitant]
     Active Substance: COBALAMIN
     Dosage: 1000 UG
     Dates: start: 20210422
  17. DEXTROMETHORPHAN [Concomitant]
     Active Substance: DEXTROMETHORPHAN
     Indication: Nasal congestion
     Dosage: 10 ML
     Dates: start: 20240221, end: 20240224
  18. BILASTINE [Concomitant]
     Active Substance: BILASTINE
     Indication: Conjunctivitis
     Dates: start: 20220315, end: 20220830
  19. METFORMIN [Concomitant]
     Active Substance: METFORMIN HYDROCHLORIDE
     Dates: start: 20210622
  20. SITAGLIPTIN [Concomitant]
     Active Substance: SITAGLIPTIN
     Indication: Hyperglycaemia
     Dates: start: 20210923
  21. NEBIVOLOL [Concomitant]
     Active Substance: NEBIVOLOL
  22. PENTOXIFYLLINE [Concomitant]
     Active Substance: PENTOXIFYLLINE
     Indication: Arthritis
     Dosage: FREQ:.5 D;
     Dates: start: 20231214
  23. LORMETAZEPAM [Concomitant]
     Active Substance: LORMETAZEPAM
     Indication: Insomnia
     Dates: start: 20230329
  24. LEVOCABASTINE [Concomitant]
     Active Substance: LEVOCABASTINE
     Indication: Conjunctivitis
     Dates: start: 20210626, end: 20220222
  25. MODERNA COVID-19 VACCINE [Concomitant]
     Active Substance: ELASOMERAN
     Dosage: 1
     Dates: start: 20211223, end: 20211223
  26. MODERNA COVID-19 VACCINE [Concomitant]
     Active Substance: ELASOMERAN
     Dosage: 1
     Dates: start: 20210603, end: 20210603
  27. HYDROCHLOROTHIAZIDE [Concomitant]
     Active Substance: HYDROCHLOROTHIAZIDE
  28. DEXAMETHASONE [Concomitant]
     Active Substance: DEXAMETHASONE
     Dates: start: 20210723
  29. DEXAMETHASONE [Concomitant]
     Active Substance: DEXAMETHASONE
     Dates: start: 20210424, end: 20210701
  30. DEXAMETHASONE [Concomitant]
     Active Substance: DEXAMETHASONE
     Dates: start: 20210722
  31. DEXAMETHASONE [Concomitant]
     Active Substance: DEXAMETHASONE
     Dates: start: 20210422, end: 20210629
  32. DEXAMETHASONE [Concomitant]
     Active Substance: DEXAMETHASONE
     Dosage: FREQ:.5 D;
     Dates: start: 20210503
  33. DEXAMETHASONE [Concomitant]
     Active Substance: DEXAMETHASONE
     Dates: start: 20210423, end: 20210630
  34. DEXAMETHASONE [Concomitant]
     Active Substance: DEXAMETHASONE
     Dates: start: 20210423, end: 20210630
  35. DEXAMETHASONE [Concomitant]
     Active Substance: DEXAMETHASONE
     Dates: start: 20210724
  36. DEXAMETHASONE [Concomitant]
     Active Substance: DEXAMETHASONE
     Dates: start: 20210723
  37. FAMOTIDINE [Concomitant]
     Active Substance: FAMOTIDINE
     Indication: Gastrointestinal disorder prophylaxis
     Dates: start: 20210727
  38. MELATONIN [Concomitant]
     Active Substance: MELATONIN
     Indication: Insomnia
     Dates: start: 20220628, end: 20220808
  39. ACETAMINOPHEN [Concomitant]
     Active Substance: ACETAMINOPHEN
     Indication: Pyrexia
     Dates: start: 20210510
  40. ACETAMINOPHEN [Concomitant]
     Active Substance: ACETAMINOPHEN
     Indication: Back pain
     Dosage: FREQ:.33 D;
     Dates: start: 20230107, end: 20230109
  41. ACETAMINOPHEN [Concomitant]
     Active Substance: ACETAMINOPHEN
     Dates: start: 20230624, end: 20230626
  42. FLUCONAZOLE [Concomitant]
     Active Substance: FLUCONAZOLE
     Dates: start: 20210611, end: 20210621
  43. ALPRAZOLAM [Concomitant]
     Active Substance: ALPRAZOLAM
     Indication: Insomnia
     Dates: start: 20220201, end: 20220628
  44. ALPRAZOLAM [Concomitant]
     Active Substance: ALPRAZOLAM
     Indication: Anxiety

REACTIONS (2)
  - Hyperthyroidism [Recovered/Resolved]
  - Hyperthyroidism [Not Recovered/Not Resolved]

NARRATIVE: CASE EVENT DATE: 20210603
